FAERS Safety Report 6140046-9 (Version None)
Quarter: 2009Q2

REPORT INFORMATION
  Report Type: 
  Country: None (occurrence: None)
  Receive Date: 20090401
  Receipt Date: 20090323
  Transmission Date: 20091009
  Serious: Yes (Other)
  Sender: FDA-Public Use
  Company Number: PHHY2009IE06923

PATIENT
  Sex: Female

DRUGS (4)
  1. CLOZARIL [Suspect]
     Indication: SCHIZOPHRENIA
     Dosage: 600 MG
     Route: 048
     Dates: start: 20050915
  2. ARIPIPRAZOLE [Suspect]
     Dosage: 15 MG DAILY
     Route: 048
     Dates: start: 20090217, end: 20090303
  3. AMISULPRIDE [Suspect]
     Dosage: 100 MG DAILY
     Route: 048
     Dates: start: 20080624, end: 20090124
  4. QUETIAPINE [Concomitant]

REACTIONS (3)
  - BLOOD PROLACTIN INCREASED [None]
  - DRUG INTERACTION [None]
  - HYPOMANIA [None]
